FAERS Safety Report 18524630 (Version 2)
Quarter: 2021Q4

REPORT INFORMATION
  Report Type: Report from Study
  Country: PH (occurrence: PH)
  Receive Date: 20201120
  Receipt Date: 20211203
  Transmission Date: 20220303
  Serious: Yes (Death, Other)
  Sender: FDA-Public Use
  Company Number: PH-JNJFOC-20201126300

PATIENT
  Age: 61 Year
  Sex: Male

DRUGS (7)
  1. ABIRATERONE ACETATE [Suspect]
     Active Substance: ABIRATERONE ACETATE
     Indication: Prostate cancer metastatic
     Route: 048
     Dates: end: 202009
  2. XGEVA [Concomitant]
     Active Substance: DENOSUMAB
     Indication: Prostate cancer
     Dates: end: 202005
  3. TRIPTORELIN [Concomitant]
     Active Substance: TRIPTORELIN
     Indication: Prostate cancer
     Dates: end: 202006
  4. TRAMADOL [Concomitant]
     Active Substance: TRAMADOL
     Indication: Pain
     Dates: end: 20201114
  5. LYRICA [Concomitant]
     Active Substance: PREGABALIN
     Indication: Pain
     Dates: end: 20201114
  6. BIOGESIC                           /00020001/ [Concomitant]
     Indication: Pain
     Dates: end: 20201114
  7. BUCLIZINE [Concomitant]
     Active Substance: BUCLIZINE
     Indication: Decreased appetite
     Dates: end: 20201114

REACTIONS (3)
  - Death [Fatal]
  - Vomiting [Unknown]
  - Decreased appetite [Unknown]
